FAERS Safety Report 4878118-9 (Version None)
Quarter: 2006Q1

REPORT INFORMATION
  Report Type: 
  Country: None (occurrence: None)
  Receive Date: 20060111
  Receipt Date: 20051026
  Transmission Date: 20060701
  Serious: Yes (Death)
  Sender: FDA-Public Use
  Company Number: 2005UW16204

PATIENT
  Age: 74 Year
  Sex: Female
  Weight: 80 kg

DRUGS (3)
  1. MEROPENEM [Suspect]
     Indication: PNEUMONIA
     Route: 042
     Dates: start: 20051018
  2. NIFEDIPINE [Concomitant]
     Indication: HYPERTENSION
     Route: 050
     Dates: start: 20051017
  3. CEDILANIDE [Concomitant]
     Indication: ARRHYTHMIA
     Route: 042
     Dates: start: 20051016

REACTIONS (2)
  - MALAISE [None]
  - SHOCK [None]
